FAERS Safety Report 7230638-8 (Version None)
Quarter: 2011Q1

REPORT INFORMATION
  Report Type: 
  Country: None (occurrence: None)
  Receive Date: 20110118
  Receipt Date: 20110113
  Transmission Date: 20110831
  Serious: Yes (Death, Hospitalization)
  Sender: FDA-Public Use
  Company Number: PHHY2011HU02805

PATIENT
  Age: 35 Year
  Sex: Female

DRUGS (4)
  1. ALGOPYRIN [Suspect]
     Dosage: UNK
  2. LEUCOTRIEN ANTAGONIST THERAPY [Concomitant]
     Indication: ASTHMA
     Dosage: UNK
  3. CATAFLAM [Suspect]
     Dosage: 50 MG, UNK
     Route: 048
  4. CYCLOSPORINE [Concomitant]
     Dosage: UNK

REACTIONS (10)
  - ASTHENIA [None]
  - DECREASED APPETITE [None]
  - ARTHRALGIA [None]
  - FLANK PAIN [None]
  - PSYCHOSOMATIC DISEASE [None]
  - CARDIOPULMONARY FAILURE [None]
  - INFERTILITY [None]
  - PURPURA [None]
  - ANGIOEDEMA [None]
  - ALLERGIC GRANULOMATOUS ANGIITIS [None]
